FAERS Safety Report 6017418-6 (Version None)
Quarter: 2008Q4

REPORT INFORMATION
  Report Type: 
  Country: None (occurrence: None)
  Receive Date: 20081223
  Receipt Date: 20081222
  Transmission Date: 20090506
  Serious: Yes (Death, Hospitalization, Other)
  Sender: FDA-Public Use
  Company Number: PHHY2008MX31190

PATIENT
  Sex: Male

DRUGS (3)
  1. DIOVAN [Suspect]
     Indication: HYPERTENSION
     Dosage: 160 MG, QD
     Route: 048
     Dates: start: 20070401, end: 20071001
  2. GLYBURIDE [Concomitant]
     Indication: DIABETES MELLITUS
  3. CAPTOPRIL [Concomitant]

REACTIONS (6)
  - CARDIO-RESPIRATORY ARREST [None]
  - DEPRESSION [None]
  - FALL [None]
  - HIP ARTHROPLASTY [None]
  - HIP FRACTURE [None]
  - JOINT DISLOCATION [None]
